FAERS Safety Report 16233869 (Version 1)
Quarter: 2019Q2

REPORT INFORMATION
  Report Type: Spontaneous
  Country: US (occurrence: US)
  Receive Date: 20190423
  Receipt Date: 20190423
  Transmission Date: 20190711
  Serious: Yes (Hospitalization, Disabling)
  Sender: FDA-Public Use
  Company Number: None

PATIENT
  Age: 41 Year
  Sex: Female
  Weight: 54 kg

DRUGS (8)
  1. ZYRTEC [Concomitant]
     Active Substance: CETIRIZINE HYDROCHLORIDE
  2. VITAMIN B COMPLEX [Concomitant]
     Active Substance: CYANOCOBALAMIN\DEXPANTHENOL\NIACINAMIDE\PYRIDOXINE HYDROCHLORIDE\RIBOFLAVIN 5^-PHOSPHATE SODIUM\THIAMINE HYDROCHLORIDE\VITAMIN B COMPLEX
  3. MAGNESIUM [Concomitant]
     Active Substance: MAGNESIUM
  4. FLUOXETINE [Suspect]
     Active Substance: FLUOXETINE HYDROCHLORIDE
     Indication: POST-TRAUMATIC STRESS DISORDER
     Dosage: ?          QUANTITY:0.5 TABLET(S);?
     Route: 048
     Dates: start: 20180115, end: 20181015
  5. ATIVAN [Concomitant]
     Active Substance: LORAZEPAM
  6. PROVENTIL [Concomitant]
     Active Substance: ALBUTEROL
  7. MELATONIN [Concomitant]
     Active Substance: MELATONIN
  8. VITAMIN D [Concomitant]
     Active Substance: VITAMIN D NOS

REACTIONS (7)
  - Anger [None]
  - Aggression [None]
  - Limb injury [None]
  - Withdrawal syndrome [None]
  - Akathisia [None]
  - Anxiety [None]
  - Palpitations [None]

NARRATIVE: CASE EVENT DATE: 20181015
